FAERS Safety Report 15736000 (Version 1)
Quarter: 2018Q4

REPORT INFORMATION
  Report Type: Spontaneous
  Country: GB (occurrence: GB)
  Receive Date: 20181218
  Receipt Date: 20181218
  Transmission Date: 20190205
  Serious: Yes (Other)
  Sender: FDA-Public Use
  Company Number: GB-TEVA-2018-GB-987774

PATIENT
  Age: 12 Year
  Sex: Female
  Weight: 47.17 kg

DRUGS (3)
  1. PIZOTIFEN [Suspect]
     Active Substance: PIZOTYLINE
     Indication: MIGRAINE
     Dosage: 500 MCG DAILY WEEK 1-4 THEN DOUBLE IN WEEK 5
     Route: 048
     Dates: start: 20180528, end: 20180626
  2. PROPRANOLOL [Suspect]
     Active Substance: PROPRANOLOL HYDROCHLORIDE
     Indication: MIGRAINE
     Dosage: INITIALLY 10MG ONCE DAILY, AFTER 2 DAYS 10MG TWICE DAILY
     Route: 048
     Dates: start: 20181102, end: 20181115
  3. SUMATRIPTAN. [Concomitant]
     Active Substance: SUMATRIPTAN

REACTIONS (3)
  - Hallucination [Recovering/Resolving]
  - Nightmare [Recovering/Resolving]
  - Paranoia [Unknown]
